FAERS Safety Report 15928561 (Version 1)
Quarter: 2019Q1

REPORT INFORMATION
  Report Type: Spontaneous
  Country: US (occurrence: US)
  Receive Date: 20190206
  Receipt Date: 20190206
  Transmission Date: 20190417
  Serious: Yes (Death, Other)
  Sender: FDA-Public Use
  Company Number: US-PFIZER INC-2017190572

PATIENT
  Age: 76 Year
  Sex: Female

DRUGS (1)
  1. IBRANCE [Suspect]
     Active Substance: PALBOCICLIB
     Indication: BREAST CANCER METASTATIC
     Dosage: 75 MG, 1X/DAY (DAILY)
     Route: 048
     Dates: start: 20170413

REACTIONS (11)
  - Fatigue [Not Recovered/Not Resolved]
  - Full blood count abnormal [Recovered/Resolved]
  - Urinary tract infection [Unknown]
  - Death [Fatal]
  - Feeling cold [Not Recovered/Not Resolved]
  - Nasal congestion [Recovered/Resolved]
  - Device related infection [Unknown]
  - Weight increased [Unknown]
  - Decreased appetite [Not Recovered/Not Resolved]
  - Somnolence [Unknown]
  - Rhinorrhoea [Unknown]

NARRATIVE: CASE EVENT DATE: 2017
